FAERS Safety Report 9421173 (Version 1)
Quarter: 2013Q3

REPORT INFORMATION
  Report Type: Spontaneous
  Country: US (occurrence: US)
  Receive Date: 20130725
  Receipt Date: 20130725
  Transmission Date: 20140515
  Serious: Yes (Other)
  Sender: FDA-Public Use
  Company Number: US-009507513-1307USA014172

PATIENT
  Sex: Female

DRUGS (2)
  1. NUVARING [Suspect]
     Indication: CONTRACEPTION
     Dosage: UNK
     Route: 067
     Dates: start: 20101028
  2. NUVARING [Suspect]
     Dosage: UNK
     Route: 067
     Dates: start: 201101, end: 201108

REACTIONS (1)
  - Pulmonary embolism [Not Recovered/Not Resolved]
